FAERS Safety Report 19674081 (Version 2)
Quarter: 2023Q2

REPORT INFORMATION
  Report Type: Spontaneous
  Country: DE (occurrence: DE)
  Receive Date: 20210809
  Receipt Date: 20230508
  Transmission Date: 20230722
  Serious: Yes (Hospitalization, Other)
  Sender: FDA-Public Use
  Company Number: DE-ADRED-06888-01

PATIENT
  Age: 49 Year
  Sex: Female
  Weight: 62 kg

DRUGS (7)
  1. OXALIPLATIN [Suspect]
     Active Substance: OXALIPLATIN
     Indication: Product used for unknown indication
     Dosage: UNK (ACCORDING TO THE SCHEME)
     Route: 065
  2. FLUOROURACIL [Suspect]
     Active Substance: FLUOROURACIL
     Indication: Product used for unknown indication
     Dosage: UNK (ACCORDING TO THE SCHEME)
     Route: 065
  3. OPIPRAMOL [Concomitant]
     Active Substance: OPIPRAMOL
     Indication: Product used for unknown indication
     Dosage: 50 MILLIGRAM, TWO TIMES A DAY ( 1-0-1-0)
     Route: 048
  4. AMLODIPINE\OLMESARTAN [Concomitant]
     Active Substance: AMLODIPINE\OLMESARTAN
     Indication: Product used for unknown indication
     Dosage: 1 DOSAGE FORM, ONCE A DAY (5|20 MG, 1-0-0-0)
     Route: 048
  5. LEUCOVORIN [Concomitant]
     Active Substance: LEUCOVORIN
     Indication: Product used for unknown indication
     Dosage: UNK (ACCORDING TO THE SCHEME)
     Route: 065
  6. LORAZEPAM [Concomitant]
     Active Substance: LORAZEPAM
     Indication: Product used for unknown indication
     Dosage: 1 MILLIGRAM, AS NECESSARY (1 MG, REQUIREMENT)
     Route: 048
  7. METAMIZOLE [Concomitant]
     Active Substance: METAMIZOLE
     Indication: Product used for unknown indication
     Dosage: 500 MILLIGRAM, AS NECESSARY ( AS NEEDED, TABLETS)
     Route: 048

REACTIONS (3)
  - Haematochezia [Unknown]
  - Diarrhoea [Unknown]
  - Pain [Unknown]
